FAERS Safety Report 19970652 (Version 4)
Quarter: 2021Q4

REPORT INFORMATION
  Report Type: Spontaneous
  Country: US (occurrence: US)
  Receive Date: 20211019
  Receipt Date: 20211130
  Transmission Date: 20220303
  Serious: Yes (Hospitalization)
  Sender: FDA-Public Use
  Company Number: US-KARYOPHARM-2021KPT001291

PATIENT

DRUGS (4)
  1. XPOVIO [Suspect]
     Active Substance: SELINEXOR
     Indication: Plasma cell myeloma
     Dosage: 100 MG, WEEKLY
     Route: 048
     Dates: start: 20210930
  2. XPOVIO [Suspect]
     Active Substance: SELINEXOR
     Dosage: 80 MG
     Route: 048
  3. XPOVIO [Suspect]
     Active Substance: SELINEXOR
     Dosage: 100 MG, WEEKLY
     Route: 048
  4. DEXAMETHASONE [Concomitant]
     Active Substance: DEXAMETHASONE
     Dosage: 20 MG, 2X/WEEK

REACTIONS (7)
  - Dyspnoea [Unknown]
  - Insomnia [Unknown]
  - Appetite disorder [Unknown]
  - Plasma cell myeloma [Unknown]
  - Diarrhoea [Unknown]
  - Platelet count decreased [Not Recovered/Not Resolved]
  - Nausea [Unknown]

NARRATIVE: CASE EVENT DATE: 20210101
